FAERS Safety Report 20624917 (Version 1)
Quarter: 2022Q1

REPORT INFORMATION
  Report Type: Report from Study
  Country: US (occurrence: None)
  Receive Date: 20220323
  Receipt Date: 20220323
  Transmission Date: 20220423
  Serious: Yes (Hospitalization)
  Sender: FDA-Public Use
  Company Number: US-Merck Healthcare KGaA-9250938

PATIENT
  Age: 54 Year
  Sex: Female

DRUGS (3)
  1. REBIF [Suspect]
     Active Substance: INTERFERON BETA-1A
     Indication: Multiple sclerosis
     Route: 058
     Dates: start: 200708, end: 201507
  2. REBIF [Suspect]
     Active Substance: INTERFERON BETA-1A
     Route: 058
     Dates: start: 201507, end: 201909
  3. REBIF [Suspect]
     Active Substance: INTERFERON BETA-1A
     Dosage: FOR BATCH NO: AU031049 EXPIRY DATE: /JUN/2022
     Route: 058
     Dates: start: 20191103

REACTIONS (11)
  - Benign vaginal neoplasm [Recovered/Resolved]
  - Injection site discolouration [Unknown]
  - Injection site erythema [Unknown]
  - Injection site bruising [Unknown]
  - Influenza like illness [Recovering/Resolving]
  - Fall [Unknown]
  - Skin discolouration [Unknown]
  - Pain [Unknown]
  - Paraesthesia [Unknown]
  - Insomnia [Recovering/Resolving]
  - Contusion [Unknown]

NARRATIVE: CASE EVENT DATE: 20210501
